FAERS Safety Report 12315592 (Version 3)
Quarter: 2016Q2

REPORT INFORMATION
  Report Type: Report from Study
  Country: US (occurrence: US)
  Receive Date: 20160428
  Receipt Date: 20160516
  Transmission Date: 20160815
  Serious: Yes (Hospitalization)
  Sender: FDA-Public Use
  Company Number: US-ACTELION-A-US2016-133259

PATIENT
  Age: 51 Year
  Sex: Female

DRUGS (4)
  1. OPSUMIT [Suspect]
     Active Substance: MACITENTAN
     Indication: PULMONARY ARTERIAL HYPERTENSION
     Dosage: 10 MG, QD
     Route: 048
     Dates: start: 20160129
  2. REVATIO [Concomitant]
     Active Substance: SILDENAFIL CITRATE
  3. OXYGEN. [Concomitant]
     Active Substance: OXYGEN
  4. VELETRI [Suspect]
     Active Substance: EPOPROSTENOL
     Indication: PULMONARY ARTERIAL HYPERTENSION
     Dosage: 5 NG/KG, PER MIN
     Route: 042
     Dates: start: 20160309

REACTIONS (12)
  - Thrombosis [Unknown]
  - Device breakage [Unknown]
  - Device connection issue [Unknown]
  - Haemorrhoidal haemorrhage [Unknown]
  - Diarrhoea [Recovering/Resolving]
  - Catheter site erythema [Unknown]
  - Oxygen consumption increased [Unknown]
  - Dermatitis contact [Unknown]
  - Headache [Unknown]
  - Catheter site vesicles [Unknown]
  - Fatigue [Unknown]
  - Catheter site pruritus [Unknown]

NARRATIVE: CASE EVENT DATE: 201604
